FAERS Safety Report 16775257 (Version 3)
Quarter: 2019Q4

REPORT INFORMATION
  Report Type: Spontaneous
  Country: US (occurrence: US)
  Receive Date: 20190905
  Receipt Date: 20191016
  Transmission Date: 20200122
  Serious: Yes (Death, Life-Threatening, Hospitalization, Other)
  Sender: FDA-Public Use
  Company Number: US-DRREDDYS-USA/USA/19/0113930

PATIENT
  Age: 4 Year
  Sex: Male
  Weight: 15.3 kg

DRUGS (5)
  1. PANTOPRAZOLE [Concomitant]
     Active Substance: PANTOPRAZOLE
     Indication: PRODUCT USED FOR UNKNOWN INDICATION
     Route: 042
  2. PROPOFOL INJECTABLE EMULSION [Suspect]
     Active Substance: PROPOFOL
     Indication: PRODUCT USED FOR UNKNOWN INDICATION
     Route: 065
  3. CEFTRIAXONE. [Concomitant]
     Active Substance: CEFTRIAXONE
     Indication: PRODUCT USED FOR UNKNOWN INDICATION
     Route: 065
  4. FENTANYL CITRATE. [Concomitant]
     Active Substance: FENTANYL CITRATE
     Indication: PRODUCT USED FOR UNKNOWN INDICATION
     Route: 065
  5. ROPIVACAINE. [Interacting]
     Active Substance: ROPIVACAINE HYDROCHLORIDE
     Indication: PAIN
     Dosage: SUBCUTANEOUS ROPIVACAINE INFUSION AT 6 MG/H (6.5 MCG/KG/MIN) VIA AN ON-Q PUMP
     Route: 058

REACTIONS (6)
  - Drug interaction [Fatal]
  - Local anaesthetic systemic toxicity [Fatal]
  - Tachycardia [Recovered/Resolved]
  - Arrhythmia [Fatal]
  - Ventricular fibrillation [Fatal]
  - Cardiac arrest [Recovered/Resolved]
